FAERS Safety Report 15758151 (Version 1)
Quarter: 2018Q4

REPORT INFORMATION
  Report Type: Spontaneous
  Country: DE (occurrence: DE)
  Receive Date: 20181225
  Receipt Date: 20181225
  Transmission Date: 20190205
  Serious: Yes (Life-Threatening, Hospitalization, Other)
  Sender: FDA-Public Use
  Company Number: DE-AUROBINDO-AUR-APL-2018-060714

PATIENT
  Age: 36 Year
  Sex: Female
  Weight: 58 kg

DRUGS (3)
  1. SOFOSBUVIR [Suspect]
     Active Substance: SOFOSBUVIR
     Indication: CHRONIC HEPATITIS C
     Dosage: DAILY DOSE: 400 MG MILLIGRAM(S) EVERY DAY
     Route: 048
     Dates: start: 20140711, end: 20140922
  2. RIBAVIRIN FILM COATED TABLETS [Suspect]
     Active Substance: RIBAVIRIN
     Indication: CHRONIC HEPATITIS C
     Dosage: 800 MILLIGRAM, ONCE A DAY
     Route: 048
     Dates: start: 20140711, end: 20140922
  3. PEGINTERFERON ALFA-2A. [Suspect]
     Active Substance: PEGINTERFERON ALFA-2A
     Indication: CHRONIC HEPATITIS C
     Dosage: DAILY DOSE: 180 ?G MICROGRAM(S) EVERY WEEK
     Route: 058
     Dates: start: 20140711, end: 20140922

REACTIONS (9)
  - Thrombocytopenia [Unknown]
  - Pancytopenia [Recovering/Resolving]
  - General physical health deterioration [Unknown]
  - Influenza like illness [Recovered/Resolved]
  - Visual acuity reduced [Unknown]
  - Alopecia [Unknown]
  - Leukopenia [Unknown]
  - Anaemia [Unknown]
  - Vision blurred [Unknown]

NARRATIVE: CASE EVENT DATE: 20140711
